FAERS Safety Report 18312269 (Version 1)
Quarter: 2020Q3

REPORT INFORMATION
  Report Type: Spontaneous
  Country: NL (occurrence: NL)
  Receive Date: 20200925
  Receipt Date: 20200925
  Transmission Date: 20201103
  Serious: Yes (Death, Hospitalization)
  Sender: FDA-Public Use
  Company Number: NL-MYLANLABS-2020M1081246

PATIENT
  Age: 79 Year
  Sex: Female

DRUGS (2)
  1. ACETAMINOPHEN. [Suspect]
     Active Substance: ACETAMINOPHEN
     Indication: STAPHYLOCOCCAL INFECTION
     Dosage: 4 GRAM, QD
     Route: 042
  2. FLUCLOXACILLIN [Interacting]
     Active Substance: FLUCLOXACILLIN
     Indication: STAPHYLOCOCCAL INFECTION
     Dosage: 12 GRAM, QD
     Route: 042

REACTIONS (6)
  - Pneumonia aspiration [Fatal]
  - Metabolic acidosis [Fatal]
  - Urinary tract infection [Fatal]
  - Drug interaction [Fatal]
  - Glutathione synthetase deficiency [Fatal]
  - Cardiac failure [Fatal]
